FAERS Safety Report 8301821-5 (Version None)
Quarter: 2012Q2

REPORT INFORMATION
  Report Type: 
  Country: None (occurrence: None)
  Receive Date: 20120413
  Receipt Date: 20120413
  Transmission Date: 20120825
  Serious: Yes (Life-Threatening, Hospitalization, Disabling)
  Sender: FDA-Public Use
  Company Number: None

PATIENT
  Age: 54 Year
  Sex: Male
  Weight: 72.5755 kg

DRUGS (1)
  1. PRAVACHOL [Suspect]
     Indication: BLOOD CHOLESTEROL INCREASED
     Dosage: PRAVACHOL 60MG 1XD ORALLY
     Route: 048
     Dates: start: 19940101, end: 20020101

REACTIONS (12)
  - ABASIA [None]
  - URINE ANALYSIS ABNORMAL [None]
  - DIPLOPIA [None]
  - NEUROPATHY PERIPHERAL [None]
  - AMNESIA [None]
  - MUSCULAR WEAKNESS [None]
  - RESPIRATORY DISORDER [None]
  - BEDRIDDEN [None]
  - DEAFNESS [None]
  - CENTRAL NERVOUS SYSTEM LESION [None]
  - DIZZINESS [None]
  - NERVOUS SYSTEM DISORDER [None]
